FAERS Safety Report 8218312-2 (Version None)
Quarter: 2012Q1

REPORT INFORMATION
  Report Type: 
  Country: None (occurrence: None)
  Receive Date: 20120319
  Receipt Date: 20120316
  Transmission Date: 20120608
  Serious: Yes (Hospitalization)
  Sender: FDA-Public Use
  Company Number: GB-SHIRE-ALL1-2012-01464

PATIENT
  Sex: Male
  Weight: 46.8 kg

DRUGS (3)
  1. RISPERIDONE [Concomitant]
     Indication: ABNORMAL BEHAVIOUR
     Dosage: UNK, UNKNOWN
     Route: 065
     Dates: start: 20111215
  2. IDURSULFASE IT [Suspect]
     Indication: MUCOPOLYSACCHARIDOSIS II
     Dosage: 1 MG, OTHER (MONTHLY)
     Route: 037
     Dates: start: 20120101
  3. ELAPRASE [Concomitant]
     Indication: MUCOPOLYSACCHARIDOSIS II
     Dosage: UNK, UNKNOWN
     Route: 041

REACTIONS (2)
  - MEDICAL DEVICE COMPLICATION [None]
  - DEVICE DISLOCATION [None]
